FAERS Safety Report 25318398 (Version 2)
Quarter: 2025Q2

REPORT INFORMATION
  Report Type: Spontaneous
  Country: US (occurrence: US)
  Receive Date: 20250515
  Receipt Date: 20250616
  Transmission Date: 20250716
  Serious: No
  Sender: PFIZER
  Company Number: US-PFIZER INC-202500100597

PATIENT
  Age: 12 Year
  Sex: Male

DRUGS (1)
  1. GENOTROPIN [Suspect]
     Active Substance: SOMATROPIN
     Dosage: 1.1 MG, DAILY
     Route: 058

REACTIONS (3)
  - Injection site haemorrhage [Unknown]
  - Lack of administration site rotation [Unknown]
  - Wrong technique in device usage process [Unknown]
